FAERS Safety Report 4693950-2 (Version None)
Quarter: 2005Q2

REPORT INFORMATION
  Report Type: 
  Country: None (occurrence: None)
  Receive Date: 20050616
  Receipt Date: 20050607
  Transmission Date: 20051028
  Serious: Yes (Death, Life-Threatening, Hospitalization)
  Sender: FDA-Public Use
  Company Number: US-2005-010077

PATIENT
  Age: 39 Year
  Sex: Male

DRUGS (9)
  1. MABCAMPATH (ALEMTUZUMAB) AMPULE [Suspect]
     Indication: MULTIPLE SCLEROSIS
     Dosage: 24 MG, INTRAVENOUS
     Route: 042
     Dates: start: 20031027, end: 20041026
  2. DIPHENHYDRAMINE HCL [Concomitant]
  3. DEXAMETHASONE [Concomitant]
  4. ACETAMINOPHEN [Concomitant]
  5. VALACYCLOVIR HCL [Concomitant]
  6. RANITIDINE [Concomitant]
  7. TYLENOL ALLERGY SINUS (CHLORPHENAMINE MALEATE, PSEUDOEPHEDRINE HYDROCH [Concomitant]
  8. CETIRIZINE (CETIRIZINE) [Concomitant]
  9. DOXYLAMINE (DOXYLAMINE) [Concomitant]

REACTIONS (6)
  - CEREBRAL HAEMORRHAGE [None]
  - MOUTH INJURY [None]
  - PROTHROMBIN TIME SHORTENED [None]
  - SUBARACHNOID HAEMORRHAGE [None]
  - THROMBOCYTOPENIA [None]
  - WHITE BLOOD CELL COUNT INCREASED [None]
